FAERS Safety Report 18511791 (Version 26)
Quarter: 2021Q1

REPORT INFORMATION
  Report Type: Spontaneous
  Country: CZ (occurrence: CZ)
  Receive Date: 20201117
  Receipt Date: 20210211
  Transmission Date: 20210419
  Serious: Yes (Hospitalization, Other)
  Sender: FDA-Public Use
  Company Number: CZ-PFIZER INC-2020450680

PATIENT
  Age: 86 Year
  Sex: Female

DRUGS (31)
  1. GUTTALAX [SODIUM PICOSULFATE] [Interacting]
     Active Substance: SODIUM PICOSULFATE
     Indication: CONSTIPATION
     Dosage: 1 DOSAGE FORM (1DF=10?20 GUTTES)
     Route: 065
  2. GUTTALAX [SODIUM PICOSULFATE] [Interacting]
     Active Substance: SODIUM PICOSULFATE
     Dosage: 1 DF
     Route: 065
  3. PANADOL [Interacting]
     Active Substance: ACETAMINOPHEN
     Indication: PAIN
     Dosage: 1.5 DOSAGE FORM,(3?4 TIMES A DAY)
     Route: 065
  4. CONDROSULF [Interacting]
     Active Substance: SODIUM CHONDROITIN SULFATE
     Dosage: 800 MG, 1X/DAY
     Route: 065
  5. CONTROLOC [Interacting]
     Active Substance: PANTOPRAZOLE SODIUM
     Dosage: 20 MILLIGRAM, QD
     Route: 065
  6. DUROGESIC [Interacting]
     Active Substance: FENTANYL
     Indication: PAIN
  7. PREDNISONE. [Interacting]
     Active Substance: PREDNISONE
     Dosage: 5 MILLIGRAM, QD
     Route: 065
  8. ORAMELLOX [Interacting]
     Active Substance: MELOXICAM
     Indication: POST HERPETIC NEURALGIA
     Dosage: 1 DOSAGE FORM, QWK
     Route: 065
     Dates: start: 2015
  9. ORAMELLOX [Interacting]
     Active Substance: MELOXICAM
     Dosage: 15 MILLIGRAM, 3/WEEK
     Route: 065
  10. BETALOC ZOK [Interacting]
     Active Substance: METOPROLOL SUCCINATE
     Dosage: 25 MILLIGRAM, QD
     Route: 065
  11. OXAZEPAM. [Interacting]
     Active Substance: OXAZEPAM
     Indication: DRUG ABUSE
     Dosage: UNK
     Route: 065
  12. HYPNOGEN [Interacting]
     Active Substance: ZOLPIDEM TARTRATE
     Indication: DRUG ABUSE
     Dosage: UNK
     Route: 065
  13. CALCICHEW D3 [Interacting]
     Active Substance: CALCIUM\CHOLECALCIFEROL
     Dosage: UNK UNK, QD
     Route: 065
  14. EUTHYROX [Interacting]
     Active Substance: LEVOTHYROXINE SODIUM
     Indication: AUTOIMMUNE THYROIDITIS
     Dosage: 100 MICROGRAM, QD
     Route: 065
  15. STILNOX [Interacting]
     Active Substance: ZOLPIDEM TARTRATE
     Indication: DRUG ABUSE
     Dosage: UNK
     Route: 065
  16. CARDILAN [NICOFURANOSE] [Interacting]
     Active Substance: NICOFURANOSE
     Dosage: UNK UNK, QD
     Route: 065
  17. DUROGESIC [Interacting]
     Active Substance: FENTANYL
     Indication: POST HERPETIC NEURALGIA
     Dosage: 25 MICROGRAM,Q72H
     Route: 065
     Dates: start: 2015
  18. TEZEO [Interacting]
     Active Substance: TELMISARTAN
     Dosage: 1 DOSAGE FORM (1DF=80/12.5 MG)
     Route: 065
  19. MAGNESIUM ASPARTATE [Interacting]
     Active Substance: MAGNESIUM ASPARTATE
     Dosage: UNK
     Route: 065
  20. POTASSIUM ASPARTATE [Interacting]
     Active Substance: POTASSIUM ASPARTATE
     Dosage: UNK
     Route: 065
  21. METHOTREXATE SODIUM. [Suspect]
     Active Substance: METHOTREXATE SODIUM
     Indication: RHEUMATOID ARTHRITIS
     Dosage: 10 MILLIGRAM, QWK
     Route: 065
     Dates: start: 2010
  22. ROSUCARD [Interacting]
     Active Substance: ROSUVASTATIN CALCIUM
     Dosage: 20 MILLIGRAM, QD
     Route: 065
  23. ACIDUM FOLICUM [Interacting]
     Active Substance: FOLIC ACID
     Dosage: UNK UNK, QD
     Route: 065
  24. IBALGIN [Interacting]
     Active Substance: IBUPROFEN
     Indication: PAIN
     Dosage: UNK
     Route: 065
  25. PREGABALIN. [Concomitant]
     Active Substance: PREGABALIN
     Dosage: UNK
  26. CORDARONE [Interacting]
     Active Substance: AMIODARONE HYDROCHLORIDE
     Indication: ATRIAL FIBRILLATION
     Dosage: 200 MILLIGRAM, QD
     Route: 065
  27. NOVALGIN [CAFFEINE;PARACETAMOL;PROPYPHENAZONE] [Interacting]
     Active Substance: ACETAMINOPHEN\CAFFEINE\PROPYPHENAZONE
     Indication: HYPERTENSION
     Dosage: 500 MILLIGRAM, Q12H
     Route: 065
  28. METAMIZOLE [Interacting]
     Active Substance: METAMIZOLE
     Indication: POST HERPETIC NEURALGIA
     Dosage: UNK
     Route: 065
  29. ELIQUIS [Interacting]
     Active Substance: APIXABAN
     Dosage: 5 MILLIGRAM, Q12H
     Route: 048
  30. AGEN [Interacting]
     Active Substance: AMLODIPINE BESYLATE
     Dosage: 5 MILLIGRAM, QD
     Route: 065
  31. TRAMADOL. [Interacting]
     Active Substance: TRAMADOL
     Dosage: UNK
     Route: 065

REACTIONS (40)
  - Delirium [Recovering/Resolving]
  - Liver function test increased [Recovering/Resolving]
  - Head discomfort [Recovering/Resolving]
  - Cognitive disorder [Recovering/Resolving]
  - Pelvic fracture [Recovered/Resolved]
  - Anxiety [Recovered/Resolved]
  - Prescription drug used without a prescription [Unknown]
  - Listless [Recovering/Resolving]
  - Hyponatraemia [Recovering/Resolving]
  - Overdose [Recovered/Resolved]
  - Condition aggravated [Recovered/Resolved]
  - Affect lability [Recovered/Resolved]
  - Atrial fibrillation [Recovering/Resolving]
  - Hypertension [Recovering/Resolving]
  - Loss of personal independence in daily activities [Recovered/Resolved]
  - Foreign body [Recovered/Resolved]
  - Incorrect dose administered [Recovered/Resolved]
  - Apathy [Recovering/Resolving]
  - Encephalopathy [Recovering/Resolving]
  - Hypoacusis [Recovered/Resolved]
  - Restlessness [Recovered/Resolved]
  - Urinary retention [Recovering/Resolving]
  - Fracture [Recovered/Resolved]
  - Dehydration [Recovered/Resolved]
  - Medication error [Recovered/Resolved]
  - Mobility decreased [Recovered/Resolved]
  - Reduced facial expression [Recovered/Resolved]
  - Oxygen saturation decreased [Recovering/Resolving]
  - Fall [Recovering/Resolving]
  - Hypokalaemia [Recovering/Resolving]
  - Nausea [Recovering/Resolving]
  - Vertigo [Recovering/Resolving]
  - General physical health deterioration [Recovering/Resolving]
  - Bedridden [Recovered/Resolved]
  - Discomfort [Recovered/Resolved]
  - Contusion [Recovered/Resolved]
  - Confusional state [Recovering/Resolving]
  - Dizziness [Recovered/Resolved]
  - Drug interaction [Recovered/Resolved]
  - Poor quality sleep [Recovered/Resolved]

NARRATIVE: CASE EVENT DATE: 2018
